FAERS Safety Report 25765222 (Version 1)
Quarter: 2025Q3

REPORT INFORMATION
  Report Type: Spontaneous
  Country: IN (occurrence: IN)
  Receive Date: 20250905
  Receipt Date: 20250905
  Transmission Date: 20251020
  Serious: Yes (Other)
  Sender: RANBAXY
  Company Number: IN-SUN PHARMACEUTICAL INDUSTRIES LTD-2025R1-525560

PATIENT
  Age: 48 Year
  Sex: Male

DRUGS (2)
  1. PREGABALIN [Suspect]
     Active Substance: PREGABALIN
     Indication: Sleep disorder
     Dosage: 900 MILLIGRAM, DAILY
     Route: 065
  2. PREGABALIN [Suspect]
     Active Substance: PREGABALIN
     Indication: Seizure
     Dosage: 30000 MILLIGRAM, DAILY
     Route: 065

REACTIONS (6)
  - Overdose [Recovering/Resolving]
  - Withdrawal syndrome [Recovering/Resolving]
  - Generalised oedema [Unknown]
  - Weight increased [Unknown]
  - Wrong technique in product usage process [Unknown]
  - Wheezing [Unknown]
